FAERS Safety Report 18979715 (Version 2)
Quarter: 2021Q1

REPORT INFORMATION
  Report Type: Spontaneous
  Country: US (occurrence: US)
  Receive Date: 20210308
  Receipt Date: 20210320
  Transmission Date: 20210420
  Serious: Yes (Life-Threatening, Hospitalization, Other)
  Sender: FDA-Public Use
  Company Number: US-MACLEODS PHARMACEUTICALS US LTD-MAC2021030384

PATIENT

DRUGS (1)
  1. AMLODIPINE [Suspect]
     Active Substance: AMLODIPINE BESYLATE
     Indication: HYPERTENSION
     Dosage: UNK
     Route: 065

REACTIONS (14)
  - Hypotension [Recovered/Resolved]
  - Cerebral haemorrhage [Recovered/Resolved]
  - Neuropathy peripheral [Not Recovered/Not Resolved]
  - Intentional overdose [Recovering/Resolving]
  - Abdominal pain upper [Recovered/Resolved]
  - Cerebral microhaemorrhage [Recovered/Resolved]
  - Nausea [Recovered/Resolved]
  - Vomiting [Recovered/Resolved]
  - Suicide attempt [Unknown]
  - Shock [Recovered/Resolved]
  - Pulseless electrical activity [Recovered/Resolved]
  - Acute kidney injury [Recovered/Resolved]
  - Anuria [Recovered/Resolved]
  - Cardiac arrest [Recovered/Resolved]
